FAERS Safety Report 6603920-2 (Version None)
Quarter: 2010Q1

REPORT INFORMATION
  Report Type: 
  Country: None (occurrence: None)
  Receive Date: 20100226
  Receipt Date: 20090317
  Transmission Date: 20100710
  Serious: No
  Sender: FDA-Public Use
  Company Number: A0773804A

PATIENT
  Age: 12 Year
  Sex: Male

DRUGS (2)
  1. LAMOTRIGINE [Suspect]
     Indication: BIPOLAR DISORDER
     Dosage: 100MG TWICE PER DAY
     Route: 048
     Dates: start: 20080801, end: 20080801
  2. ZOLOFT [Concomitant]

REACTIONS (6)
  - ANXIETY [None]
  - MOOD SWINGS [None]
  - PANIC ATTACK [None]
  - PHOBIA [None]
  - SCHOOL REFUSAL [None]
  - VOMITING [None]
